FAERS Safety Report 5167544-9 (Version None)
Quarter: 2006Q4

REPORT INFORMATION
  Report Type: 
  Country: None (occurrence: None)
  Receive Date: 20060830
  Receipt Date: 20060627
  Transmission Date: 20070319
  Serious: Yes (Other)
  Sender: FDA-Public Use
  Company Number: 224413

PATIENT
  Age: 54 Year
  Sex: Female
  Weight: 93.8946 kg

DRUGS (11)
  1. XOLAIR [Suspect]
     Indication: DRUG USE FOR UNKNOWN INDICATION
     Dosage: 300 MG SUBCUTANEOUS
     Route: 058
     Dates: start: 20050801, end: 20060425
  2. EFFEXOR XR [Concomitant]
  3. TOPROL-XL [Concomitant]
  4. CLONIDINE [Concomitant]
  5. THEOPHYLLINE [Concomitant]
  6. SINGULAIR (MONTELEUKAST SODIUM) [Concomitant]
  7. ADVAIR (FLUTICASONE PROPIONATE, SALMTEROL XINAFOATE) [Concomitant]
  8. FLONASE [Concomitant]
  9. ZYRTEC [Concomitant]
  10. ACIPHEX [Concomitant]
  11. ALBUTEROL (ALBUTEROL/ALBUTEROL SULFATE) [Concomitant]

REACTIONS (1)
  - ANAPHYLACTIC REACTION [None]
